FAERS Safety Report 21083486 (Version 5)
Quarter: 2023Q2

REPORT INFORMATION
  Report Type: Report from Study
  Country: US (occurrence: US)
  Receive Date: 20220714
  Receipt Date: 20230630
  Transmission Date: 20230722
  Serious: Yes (Other)
  Sender: FDA-Public Use
  Company Number: US-GW PHARMA-202201USGW00183

PATIENT
  Age: 45 Year
  Sex: Female

DRUGS (2)
  1. EPIDIOLEX [Suspect]
     Active Substance: CANNABIDIOL
     Indication: Product used for unknown indication
     Dosage: 350 MILLIGRAM, BID, DOSE DECREASED
     Route: 048
  2. EPIDIOLEX [Suspect]
     Active Substance: CANNABIDIOL
     Dosage: 4 MILLILITER, BID
     Route: 048

REACTIONS (4)
  - Diarrhoea [Unknown]
  - Seizure [Unknown]
  - Surgery [Unknown]
  - Seizure [Unknown]

NARRATIVE: CASE EVENT DATE: 20220113
